FAERS Safety Report 6812037-3 (Version None)
Quarter: 2010Q3

REPORT INFORMATION
  Report Type: 
  Country: None (occurrence: None)
  Receive Date: 20100701
  Receipt Date: 20100621
  Transmission Date: 20110219
  Serious: Yes (Hospitalization)
  Sender: FDA-Public Use
  Company Number: US-ELI_LILLY_AND_COMPANY-US201006005487

PATIENT
  Sex: Female

DRUGS (7)
  1. FORTEO [Suspect]
     Indication: OSTEOPOROSIS
  2. PHENOBARBITAL [Concomitant]
  3. MYSOLINE [Concomitant]
  4. DILANTIN [Concomitant]
  5. ZARONTIN [Concomitant]
  6. VITAMIN D [Concomitant]
  7. CALCIUM CARBONATE [Concomitant]

REACTIONS (6)
  - BLOOD CALCIUM DECREASED [None]
  - DEPRESSED LEVEL OF CONSCIOUSNESS [None]
  - FALL [None]
  - FRACTURE [None]
  - UPPER LIMB FRACTURE [None]
  - VITAMIN D DECREASED [None]
